FAERS Safety Report 4636435-1 (Version None)
Quarter: 2005Q2

REPORT INFORMATION
  Report Type: 
  Country: None (occurrence: None)
  Receive Date: 20050413
  Receipt Date: 20050413
  Transmission Date: 20051028
  Serious: No
  Sender: FDA-Public Use
  Company Number: None

PATIENT
  Sex: Male
  Weight: 90 kg

DRUGS (4)
  1. METHOTREXATE [Suspect]
     Dosage: HIGH DOSE
     Dates: start: 20040719
  2. PREDNISONE [Suspect]
  3. CYTOXAN [Suspect]
     Dosage: 1800 MG  IV
     Route: 042
  4. THIOGUANINE [Suspect]
     Dosage: 14410 MG PO, 14 DAYS
     Route: 048

REACTIONS (6)
  - APHASIA [None]
  - ASTHENIA [None]
  - HEADACHE [None]
  - INCONTINENCE [None]
  - PANCYTOPENIA [None]
  - PYREXIA [None]
